FAERS Safety Report 16564380 (Version 1)
Quarter: 2019Q3

REPORT INFORMATION
  Report Type: Spontaneous
  Country: IT (occurrence: IT)
  Receive Date: 20190712
  Receipt Date: 20190712
  Transmission Date: 20191004
  Serious: Yes (Other)
  Sender: FDA-Public Use
  Company Number: IT-ACCORD-138106

PATIENT
  Age: 71 Year
  Sex: Male

DRUGS (11)
  1. NORVASC [Concomitant]
     Active Substance: AMLODIPINE BESYLATE
  2. DIBASE [Concomitant]
     Active Substance: CHOLECALCIFEROL
  3. ORENCIA [Suspect]
     Active Substance: ABATACEPT
     Indication: RHEUMATOID ARTHRITIS
     Route: 042
     Dates: start: 20150105, end: 20190528
  4. GABAPENTIN. [Concomitant]
     Active Substance: GABAPENTIN
  5. DIURESIX [Concomitant]
     Active Substance: TORSEMIDE
  6. PANTORC [Concomitant]
     Active Substance: PANTOPRAZOLE SODIUM
  7. FOLINA [Concomitant]
  8. NICETILE [Concomitant]
     Active Substance: ACETYLCARNITINE HYDROCHLORIDE
  9. METHOTREXATE. [Suspect]
     Active Substance: METHOTREXATE
     Indication: RHEUMATOID ARTHRITIS
     Route: 030
     Dates: start: 20020101
  10. LOSAPREX [Concomitant]
     Active Substance: LOSARTAN POTASSIUM
  11. ATENOLOL/ATENOLOL HYDROCHLORIDE [Concomitant]

REACTIONS (1)
  - Prostate cancer [Not Recovered/Not Resolved]

NARRATIVE: CASE EVENT DATE: 20190528
